FAERS Safety Report 18432833 (Version 1)
Quarter: 2020Q4

REPORT INFORMATION
  Report Type: Spontaneous
  Country: AU (occurrence: AU)
  Receive Date: 20201027
  Receipt Date: 20201027
  Transmission Date: 20210114
  Serious: Yes (Other)
  Sender: FDA-Public Use
  Company Number: AU-LUPIN PHARMACEUTICALS INC.-2020-05706

PATIENT
  Age: 42 Day
  Sex: Female
  Weight: .66 kg

DRUGS (2)
  1. VANCOMYCIN [Suspect]
     Active Substance: VANCOMYCIN
     Indication: PAROTITIS
     Dosage: UNKNOWN
     Route: 042
  2. AMIKACIN. [Suspect]
     Active Substance: AMIKACIN
     Indication: PAROTITIS
     Dosage: UNK
     Route: 042

REACTIONS (1)
  - Drug ineffective [Unknown]
